FAERS Safety Report 7344830-5 (Version None)
Quarter: 2011Q1

REPORT INFORMATION
  Report Type: 
  Country: None (occurrence: None)
  Receive Date: 20110310
  Receipt Date: 20100908
  Transmission Date: 20110831
  Serious: Yes (Other)
  Sender: FDA-Public Use
  Company Number: US-BAYER-201021670NA

PATIENT
  Sex: Female
  Weight: 58.957 kg

DRUGS (10)
  1. YAZ [Suspect]
     Indication: ACNE
     Dosage: UNK
     Dates: start: 20070101, end: 20080101
  2. IMITREX [Concomitant]
     Dosage: 100 MG, UNK
  3. CHANTIX [Concomitant]
     Dosage: 1 MG, UNK
  4. NORETHINDRONE ACETATE [Concomitant]
     Dosage: 5 MG, UNK
  5. YASMIN [Suspect]
     Indication: DYSMENORRHOEA
  6. OCELLA [Suspect]
     Indication: ACNE
  7. PREMARIN [Concomitant]
     Dosage: 0.625 MG, QD
  8. YAZ [Suspect]
     Indication: DYSMENORRHOEA
  9. YASMIN [Suspect]
     Indication: ACNE
     Dosage: UNK
     Dates: start: 20070101, end: 20080101
  10. LUPRON [Concomitant]
     Indication: CONTRACEPTION

REACTIONS (4)
  - THROMBOSIS [None]
  - PAIN [None]
  - THROMBOPHLEBITIS SUPERFICIAL [None]
  - HYPERTENSION [None]
